FAERS Safety Report 8966103 (Version 1)
Quarter: 2012Q4

REPORT INFORMATION
  Report Type: 
  Country: US (occurrence: US)
  Receive Date: 20121217
  Receipt Date: 20121217
  Transmission Date: 20130627
  Serious: Yes (Death)
  Sender: FDA-Public Use
  Company Number: US-PFIZER INC-2012307702

PATIENT
  Age: 59 Year
  Sex: Female

DRUGS (2)
  1. SUTENT [Suspect]
     Indication: CARCINOMA KIDNEY
     Dosage: 12.5 mg, UNK
     Dates: start: 20120321, end: 20120805
  2. SUTENT [Suspect]
     Dosage: 25 mg, UNK
     Dates: start: 20120321, end: 20120805

REACTIONS (1)
  - Death [Fatal]
